FAERS Safety Report 12289566 (Version 2)
Quarter: 2016Q2

REPORT INFORMATION
  Report Type: Spontaneous
  Country: US (occurrence: US)
  Receive Date: 20160421
  Receipt Date: 20160531
  Transmission Date: 20160815
  Serious: No
  Sender: FDA-Public Use
  Company Number: US-ASTELLAS-2016US015322

PATIENT
  Sex: Male

DRUGS (2)
  1. VESICARE [Suspect]
     Active Substance: SOLIFENACIN SUCCINATE
     Indication: PROSTATIC DISORDER
     Dosage: UNK UNK, UNKNOWN FREQ.
     Route: 065
  2. VESICARE [Suspect]
     Active Substance: SOLIFENACIN SUCCINATE
     Indication: BLADDER DISORDER

REACTIONS (1)
  - Off label use [Unknown]
